FAERS Safety Report 16162632 (Version 1)
Quarter: 2019Q2

REPORT INFORMATION
  Report Type: Spontaneous
  Country: FR (occurrence: FR)
  Receive Date: 20190405
  Receipt Date: 20190405
  Transmission Date: 20190711
  Serious: Yes (Life-Threatening, Other)
  Sender: FDA-Public Use
  Company Number: FR-PROVELL PHARMACEUTICALS-2065361

PATIENT
  Age: 45 Year
  Sex: Female

DRUGS (1)
  1. EUTHYROX [Suspect]
     Active Substance: LEVOTHYROXINE SODIUM
     Indication: POST PROCEDURAL HYPOTHYROIDISM
     Route: 048
     Dates: start: 201705, end: 20171018

REACTIONS (36)
  - Chest pain [Recovering/Resolving]
  - Visual impairment [Recovering/Resolving]
  - Blood cholesterol increased [Recovering/Resolving]
  - Pallor [Recovering/Resolving]
  - Headache [Recovering/Resolving]
  - Malaise [Recovering/Resolving]
  - Vertigo [Recovering/Resolving]
  - Psychiatric symptom [Recovering/Resolving]
  - Impaired work ability [Recovering/Resolving]
  - Psychological trauma [Recovering/Resolving]
  - Muscle spasms [Recovering/Resolving]
  - Hypothyroidism [Recovering/Resolving]
  - Injury [Recovering/Resolving]
  - Memory impairment [Recovering/Resolving]
  - Fatigue [Recovering/Resolving]
  - Blood thyroid stimulating hormone increased [Recovered/Resolved]
  - Tension [Recovering/Resolving]
  - Paraesthesia [Recovering/Resolving]
  - Slow response to stimuli [Recovering/Resolving]
  - Dizziness [Recovering/Resolving]
  - Feeling of despair [Recovering/Resolving]
  - Screaming [Recovering/Resolving]
  - General physical condition abnormal [Recovering/Resolving]
  - Incoherent [Recovering/Resolving]
  - Mood swings [Recovering/Resolving]
  - Stress [Recovering/Resolving]
  - Learning disability [Recovering/Resolving]
  - Dyspnoea [Recovering/Resolving]
  - Feeling abnormal [Recovering/Resolving]
  - Aggression [Recovering/Resolving]
  - Anxiety [Recovering/Resolving]
  - Ear pain [Recovering/Resolving]
  - Palpitations [Recovering/Resolving]
  - Loss of consciousness [Recovering/Resolving]
  - Amnesia [Recovering/Resolving]
  - Irritability [Recovering/Resolving]

NARRATIVE: CASE EVENT DATE: 2017
